FAERS Safety Report 5474702-2 (Version None)
Quarter: 2007Q3

REPORT INFORMATION
  Report Type: 
  Country: None (occurrence: None)
  Receive Date: 20070927
  Receipt Date: 20070927
  Transmission Date: 20080115
  Serious: Yes (Hospitalization)
  Sender: FDA-Public Use
  Company Number: None

PATIENT
  Age: 35 Year
  Sex: Male
  Weight: 59.8748 kg

DRUGS (2)
  1. TOLTERODINE TARTRATE [Suspect]
     Dosage: 4 MG ONCE PO
     Route: 048
     Dates: start: 20070908, end: 20070908
  2. DETROL LA [Suspect]
     Dosage: 4 MG ONCE PO
     Route: 048
     Dates: start: 20070922, end: 20070922

REACTIONS (1)
  - PERICARDITIS [None]
